FAERS Safety Report 4801706-2 (Version None)
Quarter: 2005Q4

REPORT INFORMATION
  Report Type: 
  Country: None (occurrence: None)
  Receive Date: 20051013
  Receipt Date: 20051013
  Transmission Date: 20060501
  Serious: Yes (Other)
  Sender: FDA-Public Use
  Company Number: None

PATIENT
  Age: 41 Year
  Sex: Female

DRUGS (1)
  1. ZYBAN [Suspect]
     Indication: SMOKING CESSATION THERAPY
     Dosage: 1 PO BID
     Route: 048

REACTIONS (2)
  - DIZZINESS [None]
  - HEADACHE [None]
